FAERS Safety Report 25117356 (Version 1)
Quarter: 2025Q1

REPORT INFORMATION
  Report Type: Spontaneous
  Country: IN (occurrence: IN)
  Receive Date: 20250325
  Receipt Date: 20250325
  Transmission Date: 20250409
  Serious: Yes (Other)
  Sender: MACLEODS
  Company Number: IN-MACLEODS PHARMA-MAC2025052216

PATIENT

DRUGS (4)
  1. TENOFOVIR [Suspect]
     Active Substance: TENOFOVIR
     Indication: HIV infection
     Route: 065
  2. LAMIVUDINE [Concomitant]
     Active Substance: LAMIVUDINE
     Indication: HIV infection
     Route: 065
  3. RITONAVIR [Concomitant]
     Active Substance: RITONAVIR
     Indication: HIV infection
     Route: 065
  4. ATAZANAVIR [Concomitant]
     Active Substance: ATAZANAVIR
     Indication: HIV infection
     Route: 065

REACTIONS (3)
  - Femoral neck fracture [Recovering/Resolving]
  - Fanconi syndrome [Recovering/Resolving]
  - Osteoporosis [Recovering/Resolving]
